FAERS Safety Report 9496595 (Version 1)
Quarter: 2013Q3

REPORT INFORMATION
  Report Type: Spontaneous
  Country: US (occurrence: US)
  Receive Date: 20130904
  Receipt Date: 20130904
  Transmission Date: 20140515
  Serious: Yes (Other)
  Sender: FDA-Public Use
  Company Number: US-PFIZER INC-2013251633

PATIENT
  Age: 76 Year
  Sex: Male

DRUGS (26)
  1. MOTRIN IB [Suspect]
     Route: 065
  2. GABAPENTIN [Concomitant]
     Indication: NEURALGIA
     Dosage: 300 MG, 3 TIMES DAILY
     Route: 065
  3. HUMIRA [Concomitant]
     Dosage: 40 MG, UNK
     Route: 065
  4. NEXIUM [Concomitant]
     Dosage: 20 MG, UNK
     Route: 065
  5. LEXAPRO [Concomitant]
     Indication: CARDIAC DISORDER
     Dosage: 10 MG, ONCE DAILY
     Route: 065
  6. BISOPROLOL FUMARATE [Concomitant]
     Indication: CARDIAC DISORDER
     Dosage: 5 MG, ONCE DAILY
     Route: 065
  7. FISH OIL [Concomitant]
     Indication: CARDIAC DISORDER
     Dosage: 1200 MG, ONCE DAILY
     Route: 065
  8. PLAVIX [Concomitant]
     Indication: CARDIAC DISORDER
     Dosage: 75 MG, ONCE DAILY
     Route: 065
  9. ACETYLSALICYLIC ACID [Concomitant]
     Indication: CARDIAC DISORDER
     Dosage: 81 MG, ONCE DAILY
     Route: 065
  10. NIASPAN [Concomitant]
     Indication: CARDIAC DISORDER
     Dosage: 500 MG, ONCE DAILY
     Route: 065
  11. LIPITOR [Concomitant]
     Indication: CARDIAC DISORDER
     Dosage: 40 MG, ONCE DAILY
     Route: 065
  12. GLUCOTROL XL [Concomitant]
     Indication: DIABETES MELLITUS
     Dosage: 5MG, ONCE WEEKLY
     Route: 065
  13. ASCORBIC ACID [Concomitant]
     Route: 065
  14. ARAVA [Concomitant]
     Indication: RHEUMATOID ARTHRITIS
     Dosage: 20 MG, ONCE DAILY
     Route: 065
  15. VICODIN [Concomitant]
     Indication: BACK PAIN
     Dosage: 500 MG . AS REQUIRED
     Route: 065
  16. VICODIN [Concomitant]
     Indication: RHEUMATOID ARTHRITIS
  17. LAXATIVES [Concomitant]
     Dosage: UNSPECIFIED, AS REQUIRED
     Route: 065
  18. AMBIEN [Concomitant]
     Indication: SLEEP DISORDER THERAPY
     Route: 065
  19. VITAMIN D [Concomitant]
     Dosage: 1000 IU, UNK
     Route: 065
  20. GARLIC PILL [Concomitant]
     Dosage: ONE TABLET
     Route: 065
  21. CALCIUM [Concomitant]
     Dosage: 600 MG, ONCE A DAY
     Route: 065
  22. SINGULAIR [Concomitant]
     Indication: MULTIPLE ALLERGIES
     Dosage: 10 MG, UNK
     Route: 065
  23. SANCTURA [Concomitant]
     Indication: PROSTATOMEGALY
     Dosage: 60 MG, UNK
     Route: 065
  24. SANCTURA [Concomitant]
     Indication: BLADDER DISORDER
  25. UROXATRAL [Concomitant]
     Indication: PROSTATOMEGALY
     Dosage: 10 MG, UNK
     Route: 065
  26. UROXATRAL [Concomitant]
     Indication: BLADDER DISORDER

REACTIONS (4)
  - Laceration [Recovering/Resolving]
  - Back pain [Unknown]
  - Neuralgia [Unknown]
  - Renal disorder [Unknown]
